FAERS Safety Report 16239129 (Version 3)
Quarter: 2019Q3

REPORT INFORMATION
  Report Type: Spontaneous
  Country: US (occurrence: US)
  Receive Date: 20190425
  Receipt Date: 20190724
  Transmission Date: 20191004
  Serious: Yes (Other)
  Sender: FDA-Public Use
  Company Number: US-PFIZER INC-2019171922

PATIENT
  Age: 64 Year
  Sex: Female

DRUGS (3)
  1. CELEBREX [Suspect]
     Active Substance: CELECOXIB
     Dosage: UNSPECIFIED DOSE, TWICE A DAY
     Route: 048
  2. GABAPENTIN. [Suspect]
     Active Substance: GABAPENTIN
     Indication: PAIN
     Dosage: 300 MG, 4X/DAY (EVERY 6 HOURS)
     Route: 048
     Dates: start: 20180902
  3. CELEBREX [Suspect]
     Active Substance: CELECOXIB
     Indication: PAIN
     Dosage: 200 MG, AS NEEDED (TWO A DAY, IF NEEDED)
     Route: 048

REACTIONS (12)
  - Blindness [Unknown]
  - Loss of consciousness [Unknown]
  - Impaired driving ability [Unknown]
  - Sedation [Unknown]
  - Dizziness [Recovering/Resolving]
  - Somnolence [Recovering/Resolving]
  - Screaming [Not Recovered/Not Resolved]
  - Gait disturbance [Unknown]
  - Off label use [Unknown]
  - Nasopharyngitis [Unknown]
  - Mental impairment [Unknown]
  - Product use in unapproved indication [Unknown]

NARRATIVE: CASE EVENT DATE: 20180902
